FAERS Safety Report 7285079-4 (Version None)
Quarter: 2011Q1

REPORT INFORMATION
  Report Type: 
  Country: None (occurrence: None)
  Receive Date: 20110204
  Receipt Date: 20110204
  Transmission Date: 20110831
  Serious: Yes (Life-Threatening)
  Sender: FDA-Public Use
  Company Number: None

PATIENT
  Age: 62 Year
  Sex: Female
  Weight: 54.4316 kg

DRUGS (2)
  1. TRAMADOL HCL [Suspect]
     Indication: OSTEOARTHRITIS
     Dosage: 50MG ONE TAB 4X DAILY ORAL
     Route: 048
     Dates: start: 20101020, end: 20101024
  2. BACLOFEN [Suspect]
     Indication: OSTEOARTHRITIS
     Dosage: 10MG ONE THREE X DAILY ORAL
     Route: 048
     Dates: start: 20101001, end: 20101024

REACTIONS (9)
  - MENTAL STATUS CHANGES [None]
  - ANGER [None]
  - PHYSICAL ASSAULT [None]
  - PARANOIA [None]
  - SUICIDAL IDEATION [None]
  - CRYING [None]
  - DEPRESSION [None]
  - LOSS OF CONSCIOUSNESS [None]
  - PAIN [None]
